FAERS Safety Report 7431922-5 (Version None)
Quarter: 2011Q2

REPORT INFORMATION
  Report Type: 
  Country: None (occurrence: None)
  Receive Date: 20110419
  Receipt Date: 20110419
  Transmission Date: 20111010
  Serious: Yes (Hospitalization)
  Sender: FDA-Public Use
  Company Number: None

PATIENT
  Sex: Female
  Weight: 51.9 kg

DRUGS (2)
  1. TAXOL [Suspect]
     Dosage: 270 MG
     Dates: end: 20110329
  2. CARBOPLATIN [Suspect]
     Dosage: 620 MG
     Dates: end: 20110329

REACTIONS (4)
  - ABDOMINAL PAIN [None]
  - NAUSEA [None]
  - CONSTIPATION [None]
  - VOMITING [None]
